FAERS Safety Report 6221788-3 (Version None)
Quarter: 2009Q2

REPORT INFORMATION
  Report Type: 
  Country: None (occurrence: None)
  Receive Date: 20090608
  Receipt Date: 20090526
  Transmission Date: 20091009
  Serious: Yes (Death)
  Sender: FDA-Public Use
  Company Number: KV200900621

PATIENT
  Age: 63 Year
  Sex: Female

DRUGS (4)
  1. ISOSORBIDE MONONITRATE [Suspect]
     Indication: DRUG USE FOR UNKNOWN INDICATION
     Dosage: ORAL
     Route: 048
  2. MORPHINE [Concomitant]
  3. ANTIHYPERTENSIVES [Concomitant]
  4. FISH OIL (FISH OIL) [Concomitant]

REACTIONS (1)
  - RESPIRATORY FAILURE [None]
